FAERS Safety Report 11798739 (Version 1)
Quarter: 2015Q4

REPORT INFORMATION
  Report Type: Spontaneous
  Country: CA (occurrence: CA)
  Receive Date: 20151203
  Receipt Date: 20151203
  Transmission Date: 20160305
  Serious: Yes (Hospitalization)
  Sender: FDA-Public Use
  Company Number: CA-TEVA-613504ACC

PATIENT
  Age: 58 Year
  Sex: Male
  Weight: 91 kg

DRUGS (16)
  1. CYANOCOBALAMIN. [Concomitant]
     Active Substance: CYANOCOBALAMIN
  2. LANSOPRAZOLE. [Concomitant]
     Active Substance: LANSOPRAZOLE
  3. LORAZEPAM. [Concomitant]
     Active Substance: LORAZEPAM
  4. FUROSEMIDE. [Concomitant]
     Active Substance: FUROSEMIDE
  5. CIPROFLOXACIN. [Concomitant]
     Active Substance: CIPROFLOXACIN
  6. LIDOCAINE. [Concomitant]
     Active Substance: LIDOCAINE
  7. ONDANSETRON [Concomitant]
     Active Substance: ONDANSETRON
  8. PREDNISONE. [Concomitant]
     Active Substance: PREDNISONE
  9. PIPERACILLIN/TAZOBACTAM [Suspect]
     Active Substance: PIPERACILLIN SODIUM\TAZOBACTAM SODIUM
     Indication: PRODUCT USED FOR UNKNOWN INDICATION
     Dosage: 6.75 GRAM DAILY;
     Route: 042
  10. ACYCLOVIR. [Concomitant]
     Active Substance: ACYCLOVIR
  11. ARANESP [Concomitant]
     Active Substance: DARBEPOETIN ALFA
  12. HEPARIN SODIUM. [Concomitant]
     Active Substance: HEPARIN SODIUM
  13. FLUCONAZOLE. [Suspect]
     Active Substance: FLUCONAZOLE
     Indication: CANDIDA INFECTION
     Dosage: 100 MILLIGRAM DAILY;
     Route: 042
  14. CALCITONIN [Concomitant]
     Active Substance: CALCITONIN
  15. DIMENHYDRINATE. [Concomitant]
     Active Substance: DIMENHYDRINATE
  16. NYSTATIN. [Concomitant]
     Active Substance: NYSTATIN

REACTIONS (5)
  - Macrocytosis [Recovering/Resolving]
  - Myelodysplastic syndrome [Recovering/Resolving]
  - Leukopenia [Recovering/Resolving]
  - Neutropenia [Recovering/Resolving]
  - Pancytopenia [Recovering/Resolving]
